FAERS Safety Report 6302637-1 (Version None)
Quarter: 2009Q3

REPORT INFORMATION
  Report Type: 
  Country: None (occurrence: None)
  Receive Date: 20090810
  Receipt Date: 20090720
  Transmission Date: 20100115
  Serious: Yes (Other)
  Sender: FDA-Public Use
  Company Number: US-BAYER-200912604BCC

PATIENT
  Age: 45 Year
  Sex: Male
  Weight: 75 kg

DRUGS (2)
  1. RID MOUSSE [Suspect]
     Indication: LICE INFESTATION
     Dosage: CONSUMER USED ABOUT EVERY 2 TO 4 DAYS, ALL OVER HIS BODY AND HAIR WET AND DRY, FOR 10 MIN
     Route: 061
     Dates: start: 20090101, end: 20090718
  2. PERMETHRIN [Concomitant]
     Indication: LICE INFESTATION
     Route: 065

REACTIONS (8)
  - AURICULAR SWELLING [None]
  - BURNING SENSATION [None]
  - EAR INFECTION [None]
  - HAEMATEMESIS [None]
  - HYPOAESTHESIA [None]
  - LICE INFESTATION [None]
  - RECTAL HAEMORRHAGE [None]
  - TREMOR [None]
